FAERS Safety Report 6979270-1 (Version None)
Quarter: 2010Q3

REPORT INFORMATION
  Report Type: 
  Country: None (occurrence: None)
  Receive Date: 20100913
  Receipt Date: 20100909
  Transmission Date: 20110219
  Serious: Yes (Hospitalization)
  Sender: FDA-Public Use
  Company Number: US-ROXANE LABORATORIES, INC.-2010-RO-00280RO

PATIENT
  Age: 50 Year
  Sex: Male

DRUGS (3)
  1. METHADONE [Suspect]
     Indication: DRUG DEPENDENCE
     Dosage: 160 MG
  2. MAGNESIUM [Concomitant]
     Indication: ARRHYTHMIA
  3. ISOPROTERENOL HCL [Concomitant]
     Indication: ARRHYTHMIA

REACTIONS (6)
  - ELECTROCARDIOGRAM QT PROLONGED [None]
  - HYPOKALAEMIA [None]
  - HYPOMAGNESAEMIA [None]
  - PNEUMONIA [None]
  - SYNCOPE [None]
  - TORSADE DE POINTES [None]
